FAERS Safety Report 4735323-X (Version None)
Quarter: 2005Q3

REPORT INFORMATION
  Report Type: 
  Country: None (occurrence: None)
  Receive Date: 20050805
  Receipt Date: 20050728
  Transmission Date: 20060218
  Serious: Yes (Life-Threatening)
  Sender: FDA-Public Use
  Company Number: FR-ABBOTT-05P-056-0307117-00

PATIENT
  Sex: Male

DRUGS (1)
  1. NAXY SUSPENSION [Suspect]
     Indication: CHEST PAIN
     Dosage: 50 MG/ML TWICE A DAY
     Route: 048
     Dates: start: 20050501, end: 20050501

REACTIONS (3)
  - EYELID OEDEMA [None]
  - FACE OEDEMA [None]
  - RESPIRATORY DISORDER [None]
